FAERS Safety Report 4281357-1 (Version None)
Quarter: 2004Q1

REPORT INFORMATION
  Report Type: 
  Country: None (occurrence: None)
  Receive Date: 20040129
  Receipt Date: 20040119
  Transmission Date: 20041129
  Serious: Yes (Other)
  Sender: FDA-Public Use
  Company Number: JP-ROCHE-356675

PATIENT
  Age: 4 Year
  Sex: Male

DRUGS (1)
  1. TAMIFLU [Suspect]
     Dosage: FORMULATION REPORTED AS: 3% DRY SYRUP.
     Route: 048
     Dates: start: 20040113, end: 20040114

REACTIONS (2)
  - GASTROINTESTINAL HAEMORRHAGE [None]
  - VOMITING [None]
